FAERS Safety Report 21121063 (Version 1)
Quarter: 2022Q3

REPORT INFORMATION
  Report Type: Spontaneous
  Country: BR (occurrence: None)
  Receive Date: 20220722
  Receipt Date: 20220722
  Transmission Date: 20221026
  Serious: Yes (Other)
  Sender: FDA-Public Use
  Company Number: 2022A259103

PATIENT

DRUGS (3)
  1. SEROQUEL [Suspect]
     Active Substance: QUETIAPINE FUMARATE
     Route: 048
  2. ALPRAZOLAM [Concomitant]
     Active Substance: ALPRAZOLAM
     Indication: Anxiety
     Route: 065
  3. PRYSMA [Concomitant]
     Route: 065

REACTIONS (6)
  - Brain injury [Unknown]
  - Malaise [Unknown]
  - Headache [Unknown]
  - Mental fatigue [Unknown]
  - Depression [Unknown]
  - Mental disorder [Unknown]
